FAERS Safety Report 5067429-2 (Version None)
Quarter: 2006Q3

REPORT INFORMATION
  Report Type: 
  Country: None (occurrence: None)
  Receive Date: 20060726
  Receipt Date: 20060615
  Transmission Date: 20061208
  Serious: Yes (Death)
  Sender: FDA-Public Use
  Company Number: 35222

PATIENT
  Age: 68 Year
  Sex: Male

DRUGS (9)
  1. PROPARACAINE HCL 0.5% [Suspect]
     Dosage: OPHT
     Route: 047
     Dates: start: 20060429, end: 20060429
  2. VISCOELASTIC PREPARATION [Suspect]
     Dosage: IO
     Route: 031
     Dates: start: 20060429, end: 20060429
  3. VISCOELASTIC PREPARATION [Suspect]
     Dosage: IO
     Route: 031
     Dates: start: 20060429, end: 20060429
  4. PHENAZEPAMUM [Concomitant]
  5. BETADINE [Concomitant]
  6. ATROPINE [Concomitant]
  7. PHENYLEPHRINE HYDROCHLORIDE [Concomitant]
  8. BRINZOLAMIDE 1% SUSPENSION [Concomitant]
  9. BETA BLOCKER [Concomitant]

REACTIONS (5)
  - ANAPHYLACTOID REACTION [None]
  - CARDIAC FAILURE [None]
  - CATARACT OPERATION COMPLICATION [None]
  - RESPIRATORY ARREST [None]
  - RESPIRATORY FAILURE [None]
